FAERS Safety Report 7439704-5 (Version None)
Quarter: 2011Q2

REPORT INFORMATION
  Report Type: 
  Country: None (occurrence: None)
  Receive Date: 20110427
  Receipt Date: 20110414
  Transmission Date: 20111010
  Serious: Yes (Death, Hospitalization, Other)
  Sender: FDA-Public Use
  Company Number: PHEH2006US10835

PATIENT
  Sex: Female

DRUGS (27)
  1. HERCEPTIN [Concomitant]
     Dosage: 168 MG WEEKLY
     Dates: start: 20050516
  2. TAXOTERE [Concomitant]
     Dosage: 47 MG WEEKLY
     Dates: start: 20060605, end: 20061113
  3. PERIDEX [Concomitant]
     Dosage: BID
  4. TYKERB [Concomitant]
  5. NAVELBINE [Concomitant]
  6. ZOMETA [Suspect]
     Dosage: UNK
     Dates: start: 20071001
  7. FEMARA [Concomitant]
     Dosage: UNK
     Dates: start: 20040218, end: 20050201
  8. OXYCONTIN [Concomitant]
  9. VITAMIN C [Concomitant]
  10. ZOMETA [Suspect]
     Indication: METASTASES TO BONE
     Dosage: 4 MG MONTHLY
     Dates: start: 20040310, end: 20050516
  11. ZOLOFT [Concomitant]
  12. SERTRALINE [Concomitant]
  13. XELODA [Concomitant]
     Dosage: UNK
  14. ABRAXANE [Concomitant]
     Dosage: UNK
     Dates: end: 20090423
  15. OXYCODONE HCL [Concomitant]
  16. COUMADIN [Concomitant]
  17. HERCEPTIN [Concomitant]
  18. AMOXICILLIN [Concomitant]
  19. COMPAZINE [Concomitant]
  20. ABRAXANE [Concomitant]
     Dosage: UNK
  21. ZOLOFT [Concomitant]
  22. TAMOXIFEN [Concomitant]
  23. FASLODEX [Concomitant]
  24. CALCIUM [Concomitant]
  25. DEXAMETHASONE [Concomitant]
     Indication: PROPHYLAXIS
     Dosage: 10 MG WEEKLY
     Dates: start: 20060605
  26. NAVELBINE [Concomitant]
     Dosage: UNK
     Dates: start: 20050515, end: 20060501
  27. LANTUS [Concomitant]

REACTIONS (88)
  - NEOPLASM MALIGNANT [None]
  - ATELECTASIS [None]
  - DIABETES MELLITUS [None]
  - FALL [None]
  - MAGNESIUM DEFICIENCY [None]
  - PALPITATIONS [None]
  - ACTINOMYCOSIS [None]
  - TRICUSPID VALVE INCOMPETENCE [None]
  - LUNG INFILTRATION [None]
  - PYREXIA [None]
  - METASTASES TO SPINE [None]
  - GINGIVAL PAIN [None]
  - PURULENT DISCHARGE [None]
  - PARAESTHESIA [None]
  - HYDRONEPHROSIS [None]
  - DRY MOUTH [None]
  - OSTEOPOROSIS [None]
  - MITRAL VALVE INCOMPETENCE [None]
  - HEAD INJURY [None]
  - NEUROPATHY PERIPHERAL [None]
  - TREMOR [None]
  - METASTASES TO BONE [None]
  - CARBOHYDRATE ANTIGEN 15-3 INCREASED [None]
  - DENTAL CARIES [None]
  - ANAEMIA [None]
  - DIARRHOEA [None]
  - WEIGHT DECREASED [None]
  - ARTHROFIBROSIS [None]
  - PAIN IN EXTREMITY [None]
  - VOCAL CORD PARALYSIS [None]
  - DEPRESSION [None]
  - VOMITING [None]
  - STOMATITIS [None]
  - EYE NAEVUS [None]
  - CATARACT [None]
  - LEFT ATRIAL DILATATION [None]
  - PLEURAL EFFUSION [None]
  - CHILLS [None]
  - BACK PAIN [None]
  - GINGIVITIS [None]
  - IMPAIRED HEALING [None]
  - BONE DISORDER [None]
  - ORAL DISORDER [None]
  - OSTEOMYELITIS [None]
  - PRIMARY SEQUESTRUM [None]
  - ACETABULUM FRACTURE [None]
  - RIB FRACTURE [None]
  - METASTASES TO LIVER [None]
  - DYSPNOEA [None]
  - ANXIETY [None]
  - DECUBITUS ULCER [None]
  - BACTERIAL INFECTION [None]
  - JOINT EFFUSION [None]
  - ASTHENIA [None]
  - FATIGUE [None]
  - HEPATIC STEATOSIS [None]
  - BLOOD ALKALINE PHOSPHATASE INCREASED [None]
  - MYOPATHY [None]
  - COMPRESSION FRACTURE [None]
  - SPINAL OSTEOARTHRITIS [None]
  - FEMORAL NECK FRACTURE [None]
  - LETHARGY [None]
  - HYPERCALCAEMIA [None]
  - AORTIC VALVE SCLEROSIS [None]
  - ORAL PAIN [None]
  - COUGH [None]
  - AORTIC VALVE INCOMPETENCE [None]
  - ABDOMINAL PAIN [None]
  - INFLAMMATION [None]
  - CUSHINGOID [None]
  - DECREASED APPETITE [None]
  - HYPERGLYCAEMIA [None]
  - CARDIAC FAILURE CONGESTIVE [None]
  - NAIL DISORDER [None]
  - COCCYDYNIA [None]
  - HYDROPNEUMOTHORAX [None]
  - HYPERCOAGULATION [None]
  - PATHOLOGICAL FRACTURE [None]
  - URINARY TRACT INFECTION [None]
  - OSTEONECROSIS OF JAW [None]
  - MYALGIA [None]
  - NAUSEA [None]
  - HYPOAESTHESIA [None]
  - TOOTH ABSCESS [None]
  - EXOSTOSIS [None]
  - ORAL INFECTION [None]
  - PERIARTHRITIS [None]
  - ASPIRATION [None]
